FAERS Safety Report 4816682-6 (Version None)
Quarter: 2005Q4

REPORT INFORMATION
  Report Type: 
  Country: None (occurrence: None)
  Receive Date: 20051031
  Receipt Date: 20051031
  Transmission Date: 20060501
  Serious: Yes (Death)
  Sender: FDA-Public Use
  Company Number: None

PATIENT
  Age: 64 Year
  Sex: Female

DRUGS (2)
  1. FENTANYL [Suspect]
     Indication: PAIN
     Dosage: ID
     Dates: start: 20050325, end: 20050326
  2. FENTANYL [Suspect]
     Indication: ROTATOR CUFF SYNDROME
     Dosage: ID
     Dates: start: 20050325, end: 20050326

REACTIONS (3)
  - ACCIDENTAL OVERDOSE [None]
  - HYPERSOMNIA [None]
  - SNORING [None]
